FAERS Safety Report 26109617 (Version 1)
Quarter: 2025Q4

REPORT INFORMATION
  Report Type: Spontaneous
  Country: US (occurrence: US)
  Receive Date: 20251201
  Receipt Date: 20251201
  Transmission Date: 20260117
  Serious: No
  Sender: PFIZER
  Company Number: US-PFIZER INC-PV202500140202

PATIENT
  Age: 70 Year
  Sex: Female

DRUGS (1)
  1. IBRANCE [Suspect]
     Active Substance: PALBOCICLIB
     Indication: Breast cancer female
     Dosage: UNK

REACTIONS (6)
  - Productive cough [Unknown]
  - Weight decreased [Unknown]
  - White blood cell count decreased [Unknown]
  - Fatigue [Recovering/Resolving]
  - Rash [Unknown]
  - Decreased appetite [Unknown]
